FAERS Safety Report 6972821-2 (Version None)
Quarter: 2010Q3

REPORT INFORMATION
  Report Type: 
  Country: None (occurrence: None)
  Receive Date: 20100909
  Receipt Date: 20100827
  Transmission Date: 20110219
  Serious: Yes (Other)
  Sender: FDA-Public Use
  Company Number: GB-ELI_LILLY_AND_COMPANY-GB201005003053

PATIENT
  Sex: Female

DRUGS (2)
  1. ZYPREXA [Suspect]
     Dosage: 20 MG, DAILY (1/D)
     Dates: start: 20080101
  2. VALPROATE SODIUM [Concomitant]
     Indication: EPILEPSY
     Dosage: 800 MG, UNK
     Route: 048

REACTIONS (1)
  - OBESITY [None]
